FAERS Safety Report 13514556 (Version 1)
Quarter: 2017Q2

REPORT INFORMATION
  Report Type: Report from Study
  Country: TR (occurrence: TR)
  Receive Date: 20170504
  Receipt Date: 20170504
  Transmission Date: 20170830
  Serious: Yes (Death, Other)
  Sender: FDA-Public Use
  Company Number: TR-EMD SERONO-8155537

PATIENT
  Sex: Female

DRUGS (1)
  1. REBIF [Suspect]
     Active Substance: INTERFERON BETA-1A
     Indication: MULTIPLE SCLEROSIS
     Dates: start: 20080601, end: 2016

REACTIONS (2)
  - Death [Fatal]
  - Hypotension [Recovered/Resolved]

NARRATIVE: CASE EVENT DATE: 2016
